FAERS Safety Report 8459232-8 (Version None)
Quarter: 2012Q2

REPORT INFORMATION
  Report Type: 
  Country: None (occurrence: None)
  Receive Date: 20120622
  Receipt Date: 20120618
  Transmission Date: 20120825
  Serious: No
  Sender: FDA-Public Use
  Company Number: US-PFIZER INC-2012146681

PATIENT
  Sex: Male

DRUGS (1)
  1. LATANOPROST [Suspect]
     Dosage: UNK

REACTIONS (3)
  - EYE PAIN [None]
  - OCULAR HYPERAEMIA [None]
  - EYE IRRITATION [None]
